FAERS Safety Report 19449663 (Version 1)
Quarter: 2021Q2

REPORT INFORMATION
  Report Type: Spontaneous
  Country: GB (occurrence: GB)
  Receive Date: 20210622
  Receipt Date: 20210622
  Transmission Date: 20210717
  Serious: Yes (Other)
  Sender: FDA-Public Use
  Company Number: NVSC2021GB133566

PATIENT
  Age: 60 Year
  Sex: Female

DRUGS (2)
  1. ORAMORPH [Suspect]
     Active Substance: MORPHINE SULFATE
     Indication: BREAKTHROUGH PAIN
     Dosage: UNK
     Route: 065
  2. METHOTREXATE. [Suspect]
     Active Substance: METHOTREXATE
     Indication: PRODUCT USED FOR UNKNOWN INDICATION
     Dosage: UNK
     Route: 048

REACTIONS (10)
  - Rheumatoid arthritis [Unknown]
  - Mood swings [Unknown]
  - Increased appetite [Unknown]
  - Discomfort [Unknown]
  - Somnolence [Unknown]
  - Tearfulness [Unknown]
  - Frustration tolerance decreased [Unknown]
  - Cellulitis [Unknown]
  - Therapeutic response shortened [Unknown]
  - Poor quality sleep [Unknown]
